FAERS Safety Report 4645055-4 (Version None)
Quarter: 2005Q2

REPORT INFORMATION
  Report Type: 
  Country: None (occurrence: None)
  Receive Date: 20050426
  Receipt Date: 20050415
  Transmission Date: 20051028
  Serious: Yes (Hospitalization)
  Sender: FDA-Public Use
  Company Number: US-ROCHE-402285

PATIENT
  Age: 53 Year
  Sex: Male

DRUGS (5)
  1. XELODA [Suspect]
     Indication: RECTAL CANCER
     Route: 048
     Dates: start: 20050115, end: 20050405
  2. OXALIPLATIN [Concomitant]
     Indication: RECTAL CANCER
     Route: 065
     Dates: start: 20050115
  3. TOPROL-XL [Concomitant]
     Indication: HYPERTENSION
  4. COMPAZINE [Concomitant]
     Dosage: TAKEN AS REQURIED
  5. 1 UNSPECIFIED DRUG [Concomitant]
     Dosage: DRUG NAME REPORTED AS ^LOMODIL^ TAKEN AS REQUIRED

REACTIONS (1)
  - ARTERIAL THROMBOSIS LIMB [None]
